FAERS Safety Report 14485615 (Version 2)
Quarter: 2018Q1

REPORT INFORMATION
  Report Type: Report from Study
  Country: US (occurrence: US)
  Receive Date: 20180205
  Receipt Date: 20180308
  Transmission Date: 20180509
  Serious: No
  Sender: FDA-Public Use
  Company Number: US-GILEAD-2018-0319270

PATIENT
  Age: 57 Year
  Sex: Male
  Weight: 106.58 kg

DRUGS (22)
  1. BREO ELLIPTA [Concomitant]
     Active Substance: FLUTICASONE FUROATE\VILANTEROL TRIFENATATE
  2. POTASSIUM GLUCONATE [Concomitant]
     Active Substance: POTASSIUM GLUCONATE
  3. BUDESONIDE. [Concomitant]
     Active Substance: BUDESONIDE
  4. PROTONIX                           /00661201/ [Concomitant]
     Active Substance: OMEPRAZOLE
  5. DIGITEK [Concomitant]
     Active Substance: DIGOXIN
  6. WARFARIN [Concomitant]
     Active Substance: WARFARIN
  7. LEVOFLOXACIN. [Concomitant]
     Active Substance: LEVOFLOXACIN
  8. SYNTHROID [Concomitant]
     Active Substance: LEVOTHYROXINE SODIUM
  9. SILDENAFIL CITRATE. [Concomitant]
     Active Substance: SILDENAFIL CITRATE
  10. ALBUTEROL SULFATE. [Concomitant]
     Active Substance: ALBUTEROL SULFATE
  11. ATORVASTATIN [Concomitant]
     Active Substance: ATORVASTATIN
  12. FOLIC ACID. [Concomitant]
     Active Substance: FOLIC ACID
  13. FUROSEMIDE. [Concomitant]
     Active Substance: FUROSEMIDE
  14. ZOLAMIDE [Concomitant]
     Active Substance: ACETAZOLAMIDE
  15. AMBRISENTAN [Suspect]
     Active Substance: AMBRISENTAN
     Indication: PULMONARY HYPERTENSION
     Dosage: 5 MG, QD
     Route: 048
     Dates: start: 20170823
  16. VITAMIN D                          /00107901/ [Concomitant]
     Active Substance: ERGOCALCIFEROL
  17. LISINOPRIL. [Concomitant]
     Active Substance: LISINOPRIL
  18. MEGESTROL ACETATE. [Concomitant]
     Active Substance: MEGESTROL ACETATE
  19. VITAMIN B COMPLEX [Concomitant]
     Active Substance: CYANOCOBALAMIN\DEXPANTHENOL\NIACINAMIDE\PYRIDOXINE HYDROCHLORIDE\RIBOFLAVIN 5^-PHOSPHATE SODIUM\THIAMINE HYDROCHLORIDE\VITAMIN B COMPLEX
  20. ASPIRIN                            /00002701/ [Concomitant]
     Active Substance: ASPIRIN
  21. GABAPENTIN. [Concomitant]
     Active Substance: GABAPENTIN
  22. TRAMADOL. [Concomitant]
     Active Substance: TRAMADOL

REACTIONS (7)
  - Tremor [Not Recovered/Not Resolved]
  - Erythema [Recovered/Resolved]
  - Weight decreased [Not Recovered/Not Resolved]
  - Headache [Not Recovered/Not Resolved]
  - Feeling hot [Recovered/Resolved]
  - Feeling cold [Not Recovered/Not Resolved]
  - Abdominal pain [Recovered/Resolved]
